FAERS Safety Report 18673960 (Version 1)
Quarter: 2020Q4

REPORT INFORMATION
  Report Type: Spontaneous
  Country: GB (occurrence: GB)
  Receive Date: 20201228
  Receipt Date: 20201228
  Transmission Date: 20210114
  Serious: Yes (Hospitalization)
  Sender: FDA-Public Use
  Company Number: GB-CANTON LABORATORIES, LLC-2103549

PATIENT
  Age: 79 Year
  Sex: Male

DRUGS (5)
  1. NAPROSYN [Suspect]
     Active Substance: NAPROXEN
     Indication: GOUT
     Route: 048
     Dates: start: 19980817, end: 19980910
  2. DIGOXIN. [Concomitant]
     Active Substance: DIGOXIN
  3. TRAZODONE [Concomitant]
     Active Substance: TRAZODONE HYDROCHLORIDE
     Route: 048
  4. FUROSEMIDE. [Concomitant]
     Active Substance: FUROSEMIDE
     Route: 048
  5. ASPIRIN. [Suspect]
     Active Substance: ASPIRIN
     Route: 048
     Dates: end: 19980911

REACTIONS (4)
  - Ill-defined disorder [Recovering/Resolving]
  - Melaena [Recovering/Resolving]
  - Gastrointestinal haemorrhage [Recovering/Resolving]
  - Constipation [Unknown]

NARRATIVE: CASE EVENT DATE: 19980910
